FAERS Safety Report 4591931-0 (Version None)
Quarter: 2005Q1

REPORT INFORMATION
  Report Type: 
  Country: None (occurrence: None)
  Receive Date: 20050222
  Receipt Date: 20050212
  Transmission Date: 20050727
  Serious: Yes (Hospitalization, Other)
  Sender: FDA-Public Use
  Company Number: 2004111569

PATIENT
  Age: 77 Year
  Sex: Female
  Weight: 113.3993 kg

DRUGS (4)
  1. NEURONTIN [Suspect]
     Indication: ARTHRALGIA
     Dosage: 400 MG (100 MG, 4 IN 1 D), ORAL
     Route: 048
     Dates: start: 20030101, end: 20030701
  2. TERAZOSIN HYDROCHLORIDE [Concomitant]
  3. POTASSIUM (POTASSIUM) [Concomitant]
  4. LEVOTHYROXINE SODIUM [Concomitant]

REACTIONS (8)
  - GAIT DISTURBANCE [None]
  - JOINT DISLOCATION POSTOPERATIVE [None]
  - MEMORY IMPAIRMENT [None]
  - REFUSAL OF TREATMENT BY PATIENT [None]
  - SLEEP ATTACKS [None]
  - SOMNOLENCE [None]
  - STUPOR [None]
  - SURGICAL PROCEDURE REPEATED [None]
